FAERS Safety Report 5075218-8 (Version None)
Quarter: 2006Q3

REPORT INFORMATION
  Report Type: 
  Country: None (occurrence: None)
  Receive Date: 20060714
  Receipt Date: 20060418
  Transmission Date: 20061208
  Serious: No
  Sender: FDA-Public Use
  Company Number: 2006SP001740

PATIENT
  Age: 30 Year
  Sex: Female

DRUGS (1)
  1. LUNESTA [Suspect]
     Dosage: 1X;ORAL
     Route: 048

REACTIONS (1)
  - NIGHTMARE [None]
